FAERS Safety Report 8556670-X (Version None)
Quarter: 2012Q2

REPORT INFORMATION
  Report Type: 
  Country: None (occurrence: None)
  Receive Date: 20120418
  Receipt Date: 20100305
  Transmission Date: 20120825
  Serious: Yes (Other)
  Sender: FDA-Public Use
  Company Number: PHEH2010US02569

PATIENT
  Age: 80 Year

DRUGS (2)
  1. ENABLEX [Suspect]
     Indication: HYPERTONIC BLADDER
     Dosage: 7.5 MG, QD, ORAL
     Route: 048
  2. ENABLEX [Suspect]
     Indication: INCONTINENCE
     Dosage: 7.5 MG, QD, ORAL
     Route: 048

REACTIONS (2)
  - VISUAL IMPAIRMENT [None]
  - DRY EYE [None]
